FAERS Safety Report 13947348 (Version 1)
Quarter: 2017Q3

REPORT INFORMATION
  Report Type: Spontaneous
  Country: CL (occurrence: CL)
  Receive Date: 20170908
  Receipt Date: 20170908
  Transmission Date: 20171128
  Serious: Yes (Hospitalization, Other)
  Sender: FDA-Public Use
  Company Number: CL-BRISTOL-MYERS SQUIBB COMPANY-BMS-2017-080166

PATIENT
  Age: 57 Year
  Sex: Female

DRUGS (5)
  1. ATAZANAVIR SULFATE [Suspect]
     Active Substance: ATAZANAVIR SULFATE
     Indication: ACQUIRED IMMUNODEFICIENCY SYNDROME
     Route: 065
  2. RITONAVIR. [Suspect]
     Active Substance: RITONAVIR
     Indication: ACQUIRED IMMUNODEFICIENCY SYNDROME
     Route: 065
  3. LAMIVUDINE. [Suspect]
     Active Substance: LAMIVUDINE
     Indication: ACQUIRED IMMUNODEFICIENCY SYNDROME
     Route: 065
  4. ZIDOVUDINE. [Suspect]
     Active Substance: ZIDOVUDINE
     Indication: ACQUIRED IMMUNODEFICIENCY SYNDROME
     Route: 065
  5. MIGRANOL /01521501/ [Suspect]
     Active Substance: CAFFEINE\ERGOTAMINE TARTRATE\METAMIZOLE SODIUM
     Indication: HEADACHE
     Route: 065

REACTIONS (4)
  - Contraindicated product administered [Unknown]
  - Ergot poisoning [Unknown]
  - Peripheral ischaemia [Unknown]
  - Drug interaction [Unknown]
